FAERS Safety Report 13090282 (Version 2)
Quarter: 2017Q1

REPORT INFORMATION
  Report Type: Report from Study
  Country: US (occurrence: US)
  Receive Date: 20170105
  Receipt Date: 20170214
  Transmission Date: 20170428
  Serious: Yes (Hospitalization, Other)
  Sender: FDA-Public Use
  Company Number: US-BRISTOL-MYERS SQUIBB COMPANY-BMS-2016-112163

PATIENT
  Age: 32 Year
  Sex: Male
  Weight: 76 kg

DRUGS (2)
  1. NIVOLUMAB [Suspect]
     Active Substance: NIVOLUMAB
     Indication: GLIOBLASTOMA
     Dosage: 240 MG,RECENT DOSE: 9DEC16, DOSAGE: ONCE EVERY 14DAYS
     Route: 042
     Dates: start: 20161110
  2. VARLILUMAB [Suspect]
     Active Substance: VARLILUMAB
     Indication: GLIOBLASTOMA
     Dosage: 3 MG/KG, RECENT DOSE: 9DEC16, DOSAGE: ONCE EVERY 14DAYS
     Route: 042
     Dates: start: 20161110

REACTIONS (2)
  - Haemorrhage intracranial [Recovered/Resolved]
  - Seizure [Recovered/Resolved]

NARRATIVE: CASE EVENT DATE: 20161217
